FAERS Safety Report 5190055-1 (Version None)
Quarter: 2006Q4

REPORT INFORMATION
  Report Type: 
  Country: None (occurrence: None)
  Receive Date: 20061222
  Receipt Date: 20061212
  Transmission Date: 20070319
  Serious: Yes (Other)
  Sender: FDA-Public Use
  Company Number: CA-JNJFOC-20061203582

PATIENT
  Age: 58 Year
  Sex: Female

DRUGS (2)
  1. REMICADE [Suspect]
     Dosage: REACTION OCCURRED FOUR WEEKS AFTER SECOND PULSE
     Route: 042
  2. REMICADE [Suspect]
     Indication: DRUG USE FOR UNKNOWN INDICATION
     Dosage: REACTION OCCURRED FOUR WEEKS AFTER SECOND PULSE
     Route: 042

REACTIONS (1)
  - ERYTHEMA MULTIFORME [None]
